FAERS Safety Report 21270818 (Version 1)
Quarter: 2022Q3

REPORT INFORMATION
  Report Type: Spontaneous
  Country: NL (occurrence: NL)
  Receive Date: 20220830
  Receipt Date: 20220830
  Transmission Date: 20221026
  Serious: Yes (Other)
  Sender: FDA-Public Use
  Company Number: US-BRISTOL-MYERS SQUIBB COMPANY-2022-093779

PATIENT
  Age: 49 Year
  Sex: Male

DRUGS (1)
  1. IPILIMUMAB [Suspect]
     Active Substance: IPILIMUMAB
     Indication: Metastatic malignant melanoma
     Dosage: FREQUENCY: EVERY 3 WEEKS
     Route: 065
     Dates: start: 201007

REACTIONS (2)
  - Pulmonary sarcoidosis [Unknown]
  - Nausea [Unknown]
